FAERS Safety Report 9437180 (Version 1)
Quarter: 2013Q3

REPORT INFORMATION
  Report Type: Spontaneous
  Country: CA (occurrence: CA)
  Receive Date: 20130722
  Receipt Date: 20130722
  Transmission Date: 20140515
  Serious: Yes (Other)
  Sender: FDA-Public Use
  Company Number: 222614

PATIENT
  Age: 62 Year
  Sex: Female
  Weight: 106 kg

DRUGS (11)
  1. INNOHEP [Suspect]
     Indication: PRODUCT USED FOR UNKNOWN INDICATION
     Route: 058
  2. REMICADE [Suspect]
     Indication: PRODUCT USED FOR UNKNOWN INDICATION
     Dosage: 1 DOSAGE TAKEN EVERY OTHER MONTH (1 DOSAGE EVERY EIGHT WEEKS).
     Route: 042
  3. ALENDRONATE (ALENDRONATE SODIUM)(TABLET) [Concomitant]
  4. CALCIUM AND VITAMIN D (CALCIUM W/VITAMIN D NOS) [Concomitant]
  5. IRON (IRON) [Concomitant]
  6. PENTASA (MESALAZINE) [Concomitant]
  7. PREDNISONE (PREDNISONE) [Concomitant]
  8. PREVACID (LANSOPRAZOLE) [Concomitant]
  9. SYNTHROID (LEVOTHYROXINE SODIUM) [Concomitant]
  10. TYLENOL (PARACETAMOL) [Concomitant]
  11. ZANTAC (RANITIDINE HYDROCHLORIDE) [Concomitant]

REACTIONS (3)
  - Abdominal pain [None]
  - Gastrooesophageal reflux disease [None]
  - Haemoglobin decreased [None]
